FAERS Safety Report 7803066-1 (Version None)
Quarter: 2011Q4

REPORT INFORMATION
  Report Type: 
  Country: None (occurrence: None)
  Receive Date: 20111007
  Receipt Date: 20111003
  Transmission Date: 20120403
  Serious: Yes (Hospitalization)
  Sender: FDA-Public Use
  Company Number: IE-B.I. PHARMACEUTICALS,INC./RIDGEFIELD-2011-UK-00808UK

PATIENT
  Age: 98 Year
  Sex: Female

DRUGS (3)
  1. PRADAXA [Suspect]
     Indication: ATRIAL FIBRILLATION
     Dosage: 150 MG
     Route: 048
     Dates: start: 20110606
  2. OMEPRAZOLE [Concomitant]
     Indication: REFLUX GASTRITIS
     Dosage: 20 MG
  3. MIRTAZAPINE [Concomitant]
     Dosage: 30 MG

REACTIONS (1)
  - HALLUCINATION, VISUAL [None]
